FAERS Safety Report 8121766-3 (Version None)
Quarter: 2012Q1

REPORT INFORMATION
  Report Type: 
  Country: None (occurrence: None)
  Receive Date: 20120208
  Receipt Date: 20120131
  Transmission Date: 20120608
  Serious: Yes (Hospitalization, Other)
  Sender: FDA-Public Use
  Company Number: US-ABBOTT-11P-163-0887833-00

PATIENT
  Age: 55 Year
  Sex: Female

DRUGS (5)
  1. METFORMIN HCL [Concomitant]
     Indication: DIABETES MELLITUS
  2. ZOLOFT [Concomitant]
     Indication: PRODUCT USED FOR UNKNOWN INDICATION
  3. LIPITOR [Concomitant]
     Indication: PRODUCT USED FOR UNKNOWN INDICATION
     Dosage: DAILY DOSE: 80MG
  4. HUMIRA [Suspect]
     Indication: CROHN'S DISEASE
     Dosage: LOADING DOSE
     Dates: start: 20111215, end: 20111215
  5. HUMIRA [Suspect]
     Dates: start: 20120127

REACTIONS (12)
  - HEADACHE [None]
  - BLOOD GLUCOSE INCREASED [None]
  - EAR CONGESTION [None]
  - SENSORY DISTURBANCE [None]
  - RESTLESS LEGS SYNDROME [None]
  - INSOMNIA [None]
  - ANXIETY [None]
  - DYSPNOEA [None]
  - BLOOD PRESSURE INCREASED [None]
  - ANAEMIA [None]
  - MALAISE [None]
  - FEELING ABNORMAL [None]
